FAERS Safety Report 9572825 (Version 1)
Quarter: 2013Q3

REPORT INFORMATION
  Report Type: Spontaneous
  Country: US (occurrence: None)
  Receive Date: 20130930
  Receipt Date: 20130930
  Transmission Date: 20140515
  Serious: Yes (Other)
  Sender: FDA-Public Use
  Company Number: None

PATIENT
  Age: 46 Year
  Sex: Female

DRUGS (1)
  1. MORPHINE ER (MS CONTIN) [Suspect]
     Indication: PAIN
     Dosage: 1 CAPSULE
     Route: 048
     Dates: start: 20130828, end: 20130926

REACTIONS (5)
  - Drug effect decreased [None]
  - Product quality issue [None]
  - Product substitution issue [None]
  - Pain [None]
  - Product physical issue [None]
